FAERS Safety Report 16853067 (Version 2)
Quarter: 2019Q4

REPORT INFORMATION
  Report Type: Report from Study
  Country: US (occurrence: US)
  Receive Date: 20190925
  Receipt Date: 20191020
  Transmission Date: 20200122
  Serious: Yes (Hospitalization)
  Sender: FDA-Public Use
  Company Number: US-HLSUS-2019-US-000932

PATIENT
  Age: 78 Year
  Sex: Female

DRUGS (1)
  1. SANDOZ CLOZAPINE [Suspect]
     Active Substance: CLOZAPINE
     Route: 048

REACTIONS (2)
  - Neutropenia [Unknown]
  - Constipation [Unknown]

NARRATIVE: CASE EVENT DATE: 201905
